FAERS Safety Report 11466235 (Version 1)
Quarter: 2015Q3

REPORT INFORMATION
  Report Type: Spontaneous
  Country: US (occurrence: US)
  Receive Date: 20150907
  Receipt Date: 20150907
  Transmission Date: 20151125
  Serious: No
  Sender: FDA-Public Use
  Company Number: US-009507513-1509USA003596

PATIENT
  Age: 19 Year
  Sex: Female
  Weight: 73.4 kg

DRUGS (1)
  1. NEXPLANON [Suspect]
     Active Substance: ETONOGESTREL
     Indication: CONTRACEPTION
     Dosage: 1 IMPLANT/ 3 YEARS, IN HER LEFT ARM
     Dates: start: 20140826

REACTIONS (4)
  - Weight increased [Unknown]
  - Amenorrhoea [Recovered/Resolved]
  - Metrorrhagia [Unknown]
  - Urinary tract infection [Unknown]

NARRATIVE: CASE EVENT DATE: 201410
